FAERS Safety Report 14528625 (Version 2)
Quarter: 2018Q1

REPORT INFORMATION
  Report Type: Report from Study
  Country: None (occurrence: TN)
  Receive Date: 20180214
  Receipt Date: 20180309
  Transmission Date: 20180509
  Serious: Yes (Hospitalization, Disabling)
  Sender: FDA-Public Use
  Company Number: TN-ABBVIE-18K-160-2252511-00

PATIENT
  Age: 43 Year
  Sex: Female
  Weight: 68 kg

DRUGS (7)
  1. HUMIRA [Suspect]
     Active Substance: ADALIMUMAB
     Indication: RHEUMATOID ARTHRITIS
     Route: 058
     Dates: start: 20170218, end: 20171201
  2. DICLOFEN [Suspect]
     Active Substance: DICLOFENAC SODIUM
     Indication: PRODUCT USED FOR UNKNOWN INDICATION
     Route: 065
     Dates: start: 201702, end: 20180129
  3. FAMODINE [Concomitant]
     Active Substance: FAMOTIDINE
     Indication: DYSPEPSIA
     Route: 042
     Dates: start: 2015
  4. HUMIRA [Suspect]
     Active Substance: ADALIMUMAB
     Route: 058
     Dates: start: 20180201
  5. FAMODINE [Concomitant]
     Active Substance: FAMOTIDINE
     Indication: DYSPEPSIA
     Dosage: DURING HOSPITALIZATION ON 14-FEB-18
     Route: 042
  6. ACTIPP [Concomitant]
     Indication: DYSPEPSIA
     Dates: start: 20180219
  7. ACTIPP [Concomitant]
     Indication: DYSPEPSIA

REACTIONS (13)
  - Influenza [Recovered/Resolved]
  - Pain in extremity [Recovered/Resolved]
  - Pharyngeal inflammation [Recovered/Resolved]
  - Hypotension [Not Recovered/Not Resolved]
  - Rheumatoid arthritis [Recovering/Resolving]
  - Inappropriate schedule of drug administration [Unknown]
  - Musculoskeletal pain [Recovered/Resolved]
  - Joint swelling [Unknown]
  - Vertigo [Unknown]
  - Stomatitis [Recovered/Resolved]
  - Discomfort [Unknown]
  - Spondylitis [Recovering/Resolving]
  - Sneezing [Recovered/Resolved]

NARRATIVE: CASE EVENT DATE: 2017
